FAERS Safety Report 7643024-3 (Version None)
Quarter: 2011Q3

REPORT INFORMATION
  Report Type: 
  Country: None (occurrence: None)
  Receive Date: 20110728
  Receipt Date: 20110720
  Transmission Date: 20111222
  Serious: Yes (Other)
  Sender: FDA-Public Use
  Company Number: JP-CELGENEUS-TAJPN-10-0584

PATIENT
  Sex: Female
  Weight: 46 kg

DRUGS (5)
  1. ZOMETA [Concomitant]
     Dosage: 4 MILLIGRAM
     Route: 065
     Dates: start: 20080710
  2. PROTECADIN [Concomitant]
     Route: 048
     Dates: start: 20100928
  3. HERCEPTIN [Concomitant]
     Dosage: 97 MILLIGRAM
     Route: 065
     Dates: start: 20080710, end: 20100928
  4. GABAPENTIN [Concomitant]
     Route: 048
     Dates: start: 20100601
  5. ABRAXANE [Suspect]
     Dosage: 361.4 MILLIGRAM
     Route: 065
     Dates: start: 20100928, end: 20100928

REACTIONS (3)
  - VISION BLURRED [None]
  - OPTIC NERVE DISORDER [None]
  - DRY EYE [None]
